FAERS Safety Report 6120731-5 (Version None)
Quarter: 2009Q1

REPORT INFORMATION
  Report Type: 
  Country: None (occurrence: None)
  Receive Date: 20090317
  Receipt Date: 20090310
  Transmission Date: 20090719
  Serious: Yes (Hospitalization)
  Sender: FDA-Public Use
  Company Number: US-ELI_LILLY_AND_COMPANY-US200901000460

PATIENT
  Sex: Female

DRUGS (3)
  1. BYETTA [Suspect]
     Dosage: UNK, UNKNOWN
  2. LANTUS [Concomitant]
     Dosage: UNK, UNKNOWN
     Dates: start: 20080101
  3. GLUCOPHAGE [Concomitant]
     Dosage: UNK, UNKNOWN

REACTIONS (4)
  - ABDOMINAL PAIN UPPER [None]
  - DISCOMFORT [None]
  - VOMITING [None]
  - WEIGHT DECREASED [None]
